FAERS Safety Report 4747541-5 (Version None)
Quarter: 2005Q3

REPORT INFORMATION
  Report Type: 
  Country: None (occurrence: None)
  Receive Date: 20050818
  Receipt Date: 20040428
  Transmission Date: 20060218
  Serious: No
  Sender: FDA-Public Use
  Company Number: US-BRISTOL-MYERS SQUIBB COMPANY-12575528

PATIENT
  Sex: Female

DRUGS (6)
  1. TEQUIN [Suspect]
     Indication: PNEUMONIA
     Route: 048
     Dates: start: 20030101
  2. PLAVIX [Concomitant]
  3. ASPIRIN [Concomitant]
  4. DIOVAN [Concomitant]
  5. PLAQUENIL [Concomitant]
  6. IMURAN [Concomitant]

REACTIONS (1)
  - GLUCOSE TOLERANCE IMPAIRED [None]
